FAERS Safety Report 23760480 (Version 5)
Quarter: 2025Q2

REPORT INFORMATION
  Report Type: Spontaneous
  Country: JP (occurrence: JP)
  Receive Date: 20240419
  Receipt Date: 20250427
  Transmission Date: 20250716
  Serious: Yes (Other)
  Sender: TAKEDA
  Company Number: JP-TAKEDA-2024TJP005755

PATIENT
  Age: 68 Year
  Sex: Male
  Weight: 58 kg

DRUGS (5)
  1. ALUNBRIG [Suspect]
     Active Substance: BRIGATINIB
     Indication: Non-small cell lung cancer
     Dosage: 180 MILLIGRAM, QD
     Dates: start: 20231113, end: 20240215
  2. ALUNBRIG [Suspect]
     Active Substance: BRIGATINIB
     Dates: start: 20240413, end: 20240416
  3. GLYCERIN [Concomitant]
     Active Substance: GLYCERIN
     Indication: Non-small cell lung cancer
  4. DECADRON [Concomitant]
     Active Substance: DEXAMETHASONE
     Indication: Non-small cell lung cancer
  5. DECADRON [Concomitant]
     Active Substance: DEXAMETHASONE
     Dates: start: 20231120, end: 20240118

REACTIONS (3)
  - Pleural effusion [Recovering/Resolving]
  - Renal impairment [Recovered/Resolved]
  - Pleurisy [Unknown]

NARRATIVE: CASE EVENT DATE: 20240105
